FAERS Safety Report 15155023 (Version 2)
Quarter: 2018Q3

REPORT INFORMATION
  Report Type: Spontaneous
  Country: US (occurrence: US)
  Receive Date: 20180717
  Receipt Date: 20180823
  Transmission Date: 20181010
  Serious: Yes (Hospitalization)
  Sender: FDA-Public Use
  Company Number: US-TEVA-2018-US-926463

PATIENT
  Sex: Male

DRUGS (1)
  1. CEFALEXIN [Suspect]
     Active Substance: CEPHALEXIN
     Route: 065
     Dates: start: 20180629

REACTIONS (2)
  - Hypervolaemia [Recovered/Resolved]
  - Ill-defined disorder [Unknown]

NARRATIVE: CASE EVENT DATE: 2018
